FAERS Safety Report 9531406 (Version 2)
Quarter: 2013Q4

REPORT INFORMATION
  Report Type: Report from Study
  Country: JP (occurrence: JP)
  Receive Date: 20130918
  Receipt Date: 20131108
  Transmission Date: 20140711
  Serious: Yes (Hospitalization)
  Sender: FDA-Public Use
  Company Number: JP-JNJFOC-20130906888

PATIENT
  Age: 79 Year
  Sex: Male
  Weight: 74 kg

DRUGS (14)
  1. STELARA [Suspect]
     Indication: PSORIASIS
     Route: 058
     Dates: start: 20130207, end: 20130207
  2. STELARA [Suspect]
     Indication: PSORIASIS
     Route: 058
     Dates: start: 20130528, end: 20130528
  3. STELARA [Suspect]
     Indication: PSORIASIS
     Route: 058
     Dates: start: 20130307, end: 20130307
  4. BONALFA [Concomitant]
     Indication: PSORIASIS
     Route: 061
  5. SODIUM FUSIDATE [Concomitant]
     Indication: PSORIASIS
     Route: 061
  6. HYDROCORTISONE BUTYRATE PROPIONATE [Concomitant]
     Indication: PSORIASIS
     Route: 061
  7. NEUROTROPIN [Concomitant]
     Indication: LUMBAR SPINAL STENOSIS
     Route: 048
  8. OPALMON [Concomitant]
     Indication: LUMBAR SPINAL STENOSIS
     Route: 048
  9. MUCOSTA [Concomitant]
     Indication: PROPHYLAXIS
     Route: 048
     Dates: start: 20130606, end: 20130609
  10. PARIET [Concomitant]
     Indication: PROPHYLAXIS
     Route: 048
     Dates: start: 20130606, end: 20130629
  11. ZYLORIC [Concomitant]
     Indication: PROPHYLAXIS
     Route: 048
     Dates: start: 20130606, end: 20130610
  12. FEBURIC [Concomitant]
     Indication: PROPHYLAXIS
     Route: 048
     Dates: start: 20130611, end: 20130620
  13. FEBURIC [Concomitant]
     Indication: PROPHYLAXIS
     Route: 048
     Dates: start: 20130621, end: 20130629
  14. BAKTAR [Concomitant]
     Indication: PROPHYLAXIS
     Route: 048
     Dates: start: 20130618, end: 20130628

REACTIONS (1)
  - Acute lymphocytic leukaemia [Not Recovered/Not Resolved]
